FAERS Safety Report 7648137-8 (Version None)
Quarter: 2011Q3

REPORT INFORMATION
  Report Type: 
  Country: None (occurrence: None)
  Receive Date: 20110801
  Receipt Date: 20110726
  Transmission Date: 20111222
  Serious: Yes (Death)
  Sender: FDA-Public Use
  Company Number: US-PFIZER INC-2011154003

PATIENT
  Sex: Female

DRUGS (4)
  1. LANTUS [Concomitant]
     Indication: DIABETES MELLITUS
  2. LOPRESOR - SLOW RELEASE [Concomitant]
     Indication: HYPERTENSION
  3. VFEND [Suspect]
     Indication: FUNGAL INFECTION
     Dosage: 200 MG, 2X/DAY
     Route: 048
     Dates: start: 20110408, end: 20110630
  4. LOSARTAN POTASSIUM AND HYDROCHLOROTHIAZIDE [Concomitant]
     Indication: HYPERTENSION

REACTIONS (2)
  - LEUKAEMIA RECURRENT [None]
  - DISEASE PROGRESSION [None]
